FAERS Safety Report 4505024-1 (Version None)
Quarter: 2004Q4

REPORT INFORMATION
  Report Type: 
  Country: None (occurrence: None)
  Receive Date: 20041116
  Receipt Date: 20041027
  Transmission Date: 20050328
  Serious: Yes (Disabling)
  Sender: FDA-Public Use
  Company Number: DSA_25266_2004

PATIENT
  Age: 60 Year
  Sex: Male

DRUGS (6)
  1. ENALAPRIL MALEATE AND HYDROCHLOROTHIAZIDE [Suspect]
     Indication: HYPERTENSION
     Dosage: DF PO
     Route: 048
     Dates: start: 20040123
  2. NEVIRAPINE [Suspect]
     Indication: HIV INFECTION
     Dosage: DF PO
     Route: 048
     Dates: start: 19990101
  3. PRAVASTATIN [Suspect]
     Indication: DYSLIPIDAEMIA
     Dosage: DF PO
     Route: 048
     Dates: start: 20040123
  4. ZIDOVUIDINE W/LAMIVUDINE [Suspect]
     Indication: HIV INFECTION
     Dosage: 1 TAB BID PO
     Route: 047
     Dates: start: 19990101
  5. BENSERAZIDE HYDROCHLORIDE [Concomitant]
  6. LEVODOPA [Concomitant]

REACTIONS (1)
  - OSTEONECROSIS [None]
